FAERS Safety Report 6951178-7 (Version None)
Quarter: 2010Q3

REPORT INFORMATION
  Report Type: 
  Country: None (occurrence: None)
  Receive Date: 20100828
  Receipt Date: 20100316
  Transmission Date: 20110219
  Serious: No
  Sender: FDA-Public Use
  Company Number: US-ABBOTT-10P-163-0632783-00

PATIENT
  Sex: Female
  Weight: 57.204 kg

DRUGS (1)
  1. NIASPAN [Suspect]
     Indication: BLOOD CHOLESTEROL INCREASED
     Dosage: AT NIGHT
     Dates: start: 20100311

REACTIONS (3)
  - FLUSHING [None]
  - PRURITUS [None]
  - SKIN EXFOLIATION [None]
